FAERS Safety Report 21904796 (Version 3)
Quarter: 2023Q1

REPORT INFORMATION
  Report Type: Report from Study
  Country: US (occurrence: US)
  Receive Date: 20230124
  Receipt Date: 20230317
  Transmission Date: 20230418
  Serious: Yes (Other)
  Sender: FDA-Public Use
  Company Number: US-ABBVIE-4279893

PATIENT
  Sex: Female

DRUGS (1)
  1. SKYRIZI [Suspect]
     Active Substance: RISANKIZUMAB-RZAA
     Indication: Psoriasis
     Route: 058
     Dates: start: 20220606

REACTIONS (9)
  - Latent tuberculosis [Recovered/Resolved]
  - Cardiac disorder [Unknown]
  - Respiratory disorder [Recovered/Resolved]
  - Skin discolouration [Not Recovered/Not Resolved]
  - Bronchitis [Recovered/Resolved]
  - Parkinson^s disease [Not Recovered/Not Resolved]
  - Pneumonia [Recovered/Resolved]
  - Blood pressure fluctuation [Unknown]
  - Abdominal pain upper [Unknown]
